FAERS Safety Report 25569690 (Version 1)
Quarter: 2025Q3

REPORT INFORMATION
  Report Type: Report from Study
  Country: US (occurrence: US)
  Receive Date: 20250717
  Receipt Date: 20250717
  Transmission Date: 20251021
  Serious: Yes (Other)
  Sender: ABBVIE
  Company Number: US-ABBVIE-6371825

PATIENT
  Sex: Female

DRUGS (1)
  1. SKYRIZI [Suspect]
     Active Substance: RISANKIZUMAB-RZAA
     Indication: Psoriasis
     Route: 058
     Dates: start: 20240923

REACTIONS (4)
  - Ear tube insertion [Not Recovered/Not Resolved]
  - Influenza [Recovered/Resolved]
  - Varicose vein [Not Recovered/Not Resolved]
  - Cystocele [Not Recovered/Not Resolved]
